FAERS Safety Report 25929627 (Version 1)
Quarter: 2025Q4

REPORT INFORMATION
  Report Type: Spontaneous
  Country: US (occurrence: None)
  Receive Date: 20251015
  Receipt Date: 20251015
  Transmission Date: 20260117
  Serious: Yes (Hospitalization)
  Sender: FDA-CTU
  Company Number: None

PATIENT
  Age: 69 Year
  Sex: Female

DRUGS (1)
  1. TYMLOS [Suspect]
     Active Substance: ABALOPARATIDE
     Indication: Drug therapy
     Dosage: 80MCG QD SUBCUTANEOUS
     Route: 058

REACTIONS (3)
  - Asthma [None]
  - Pneumonia [None]
  - Therapy interrupted [None]
